FAERS Safety Report 13094707 (Version 3)
Quarter: 2017Q2

REPORT INFORMATION
  Report Type: Spontaneous
  Country: US (occurrence: US)
  Receive Date: 20170106
  Receipt Date: 20170417
  Transmission Date: 20170830
  Serious: No
  Sender: FDA-Public Use
  Company Number: GXBR2016US003229

PATIENT
  Sex: Female

DRUGS (1)
  1. GLATOPA [Suspect]
     Active Substance: GLATIRAMER ACETATE
     Indication: PRODUCT USED FOR UNKNOWN INDICATION
     Dosage: UNK DF, UNK
     Route: 065

REACTIONS (10)
  - Injection site reaction [Unknown]
  - Hypoaesthesia [Unknown]
  - Injection site pain [Unknown]
  - Pain [Unknown]
  - Drug ineffective [Unknown]
  - Feeling abnormal [Unknown]
  - Musculoskeletal stiffness [Unknown]
  - Flushing [Unknown]
  - Dizziness [Unknown]
  - Uhthoff^s phenomenon [Unknown]
